FAERS Safety Report 6720526-5 (Version None)
Quarter: 2010Q2

REPORT INFORMATION
  Report Type: 
  Country: None (occurrence: None)
  Receive Date: 20100503
  Receipt Date: 20100503
  Transmission Date: 20101027
  Serious: Yes (Other)
  Sender: FDA-Public Use
  Company Number: None

PATIENT
  Age: 40 Year
  Sex: Female
  Weight: 99.7913 kg

DRUGS (3)
  1. ICYHOT PAIN RELIEVING CREAM EXTRA STRENGTH CHATTEM INC. [Suspect]
     Indication: ARTHRALGIA
     Dosage: APPLY GENEROUS 2 AFFECTED AREA PRN,MAX 4X QD TOP
     Route: 061
     Dates: start: 20100415, end: 20100415
  2. ICYHOT PAIN RELIEVING CREAM EXTRA STRENGTH CHATTEM INC. [Suspect]
     Indication: PAIN
     Dosage: APPLY GENEROUS 2 AFFECTED AREA PRN,MAX 4X QD TOP
     Route: 061
     Dates: start: 20100415, end: 20100415
  3. ICYHOT PAIN RELIEVING CREAM EXTRA STRENGTH CHATTEM INC. [Suspect]
     Indication: PAIN IN EXTREMITY
     Dosage: APPLY GENEROUS 2 AFFECTED AREA PRN,MAX 4X QD TOP
     Route: 061
     Dates: start: 20100415, end: 20100415

REACTIONS (3)
  - APPLICATION SITE DISCOMFORT [None]
  - APPLICATION SITE PRURITUS [None]
  - APPLICATION SITE RASH [None]
